FAERS Safety Report 4789499-9 (Version None)
Quarter: 2005Q4

REPORT INFORMATION
  Report Type: 
  Country: None (occurrence: None)
  Receive Date: 20051005
  Receipt Date: 20051005
  Transmission Date: 20060501
  Serious: Yes (Hospitalization)
  Sender: FDA-Public Use
  Company Number: None

PATIENT
  Age: 46 Year
  Sex: Female
  Weight: 72 kg

DRUGS (13)
  1. IODIXANOL  CONTRAST DYE [Suspect]
     Indication: DIAGNOSTIC PROCEDURE
     Dosage: 70 ML IV
     Route: 042
     Dates: start: 20050318, end: 20050321
  2. LANSOPRAZOLE [Concomitant]
  3. FERROUS SULFATE TAB [Concomitant]
  4. CLOPIDOGREL [Concomitant]
  5. ASPIRIN [Concomitant]
  6. ENALAPRIL [Concomitant]
  7. INSULIN [Concomitant]
  8. NIFEDIPINE [Concomitant]
  9. METOPROLOL [Concomitant]
  10. ACETAMINOPHEN [Concomitant]
  11. OXYCODONE HCL [Concomitant]
  12. FUROSEMIDE [Concomitant]
  13. ROSUVASTATIN [Concomitant]

REACTIONS (1)
  - BLOOD CREATININE INCREASED [None]
